FAERS Safety Report 5583570-X (Version None)
Quarter: 2007Q4

REPORT INFORMATION
  Report Type: 
  Country: None (occurrence: None)
  Receive Date: 20071231
  Receipt Date: 20071221
  Transmission Date: 20080405
  Serious: Yes (Other)
  Sender: FDA-Public Use
  Company Number: 009306

PATIENT
  Age: 23 Year
  Sex: Female
  Weight: 86.2 kg

DRUGS (3)
  1. CLARAVIS [Suspect]
     Dosage: 40 MG, BID, ORAL
     Route: 048
     Dates: start: 20061103, end: 20061127
  2. FOLIC ACID [Concomitant]
  3. AZULFIDINE [Concomitant]

REACTIONS (5)
  - ABORTION SPONTANEOUS [None]
  - DRUG EXPOSURE DURING PREGNANCY [None]
  - DRUG INEFFECTIVE [None]
  - PLACENTAL DISORDER [None]
  - PREGNANCY ON ORAL CONTRACEPTIVE [None]
